FAERS Safety Report 6038644-6 (Version None)
Quarter: 2009Q1

REPORT INFORMATION
  Report Type: 
  Country: None (occurrence: None)
  Receive Date: 20090115
  Receipt Date: 20090106
  Transmission Date: 20090719
  Serious: Yes (Other)
  Sender: FDA-Public Use
  Company Number: US-JNJFOC-20090100875

PATIENT
  Age: 71 Year
  Sex: Female
  Weight: 51.8 kg

DRUGS (13)
  1. REMICADE [Suspect]
     Route: 042
  2. REMICADE [Suspect]
     Indication: RHEUMATOID ARTHRITIS
     Route: 042
  3. ALBUTEROL [Concomitant]
  4. FOSAMAX [Concomitant]
  5. AMLODIPINE [Concomitant]
  6. ESTRA-C [Concomitant]
  7. CALCIUM CARBONATE [Concomitant]
  8. FOLIC ACID [Concomitant]
  9. HYDROCODEINE [Concomitant]
     Indication: PAIN
     Dosage: AS NECESSARY EVERY 4-6 HOURS
  10. LEVOXYL [Concomitant]
  11. METHOTREXATE [Concomitant]
     Route: 048
  12. PREDNISONE TAB [Concomitant]
  13. SPIRIVA [Concomitant]
     Route: 055

REACTIONS (3)
  - LUNG NEOPLASM [None]
  - SINUSITIS [None]
  - UPPER RESPIRATORY TRACT INFECTION [None]
